FAERS Safety Report 15743914 (Version 1)
Quarter: 2018Q4

REPORT INFORMATION
  Report Type: Spontaneous
  Country: DE (occurrence: DE)
  Receive Date: 20181220
  Receipt Date: 20181220
  Transmission Date: 20190205
  Serious: Yes (Other)
  Sender: FDA-Public Use
  Company Number: DE-AMGEN-DEUSP2018177696

PATIENT
  Age: 43 Year
  Sex: Female
  Weight: 85 kg

DRUGS (2)
  1. AMGEVITA [Suspect]
     Active Substance: ADALIMUMAB
     Indication: COLITIS ULCERATIVE
     Dosage: 80 MG, UNK
     Route: 058
  2. AMGEVITA [Suspect]
     Active Substance: ADALIMUMAB
     Dosage: 40 MG, Q2WK
     Route: 058
     Dates: start: 20181116

REACTIONS (3)
  - Pneumonia [Not Recovered/Not Resolved]
  - Cough [Not Recovered/Not Resolved]
  - Muscle abscess [Not Recovered/Not Resolved]

NARRATIVE: CASE EVENT DATE: 20181119
